FAERS Safety Report 11349208 (Version 1)
Quarter: 2015Q3

REPORT INFORMATION
  Report Type: Spontaneous
  Country: US (occurrence: None)
  Receive Date: 20150805
  Receipt Date: 20150805
  Transmission Date: 20151125
  Serious: No
  Sender: FDA-Public Use
  Company Number: None

PATIENT
  Age: 60 Year
  Sex: Male

DRUGS (9)
  1. ACETAMINOPHEN. [Concomitant]
     Active Substance: ACETAMINOPHEN
  2. ATENOLOL. [Concomitant]
     Active Substance: ATENOLOL
  3. TEMAZEPAM. [Concomitant]
     Active Substance: TEMAZEPAM
  4. ALBUTEROL. [Concomitant]
     Active Substance: ALBUTEROL
  5. CEFEPIME [Concomitant]
     Active Substance: CEFEPIME HYDROCHLORIDE
  6. MIRTAZAPINE. [Concomitant]
     Active Substance: MIRTAZAPINE
  7. CEFTRIAXONE. [Concomitant]
     Active Substance: CEFTRIAXONE
  8. WARFARIN [Suspect]
     Active Substance: WARFARIN
     Indication: AORTIC VALVE REPLACEMENT
     Route: 048
     Dates: start: 20141201
  9. LISINOPRIL. [Concomitant]
     Active Substance: LISINOPRIL

REACTIONS (1)
  - International normalised ratio increased [None]

NARRATIVE: CASE EVENT DATE: 20141201
